FAERS Safety Report 14377504 (Version 1)
Quarter: 2018Q1

REPORT INFORMATION
  Report Type: Spontaneous
  Country: US (occurrence: US)
  Receive Date: 20180111
  Receipt Date: 20180111
  Transmission Date: 20180509
  Serious: Yes (Hospitalization)
  Sender: FDA-Public Use
  Company Number: US-PFIZER INC-2018013795

PATIENT
  Age: 76 Year
  Sex: Female
  Weight: 82.55 kg

DRUGS (1)
  1. RAPAMUNE [Suspect]
     Active Substance: SIROLIMUS
     Indication: RENAL TRANSPLANT
     Dosage: 1 MG, 1X/DAY
     Route: 048
     Dates: start: 2003

REACTIONS (3)
  - Haematochezia [Recovering/Resolving]
  - Skin lesion [Recovering/Resolving]
  - Dehydration [Recovering/Resolving]
